FAERS Safety Report 13410698 (Version 1)
Quarter: 2017Q2

REPORT INFORMATION
  Report Type: Spontaneous
  Country: CH (occurrence: CH)
  Receive Date: 20170406
  Receipt Date: 20170406
  Transmission Date: 20170830
  Serious: Yes (Hospitalization)
  Sender: FDA-Public Use
  Company Number: CH-PFIZER INC-2017141190

PATIENT
  Age: 71 Year
  Sex: Female

DRUGS (18)
  1. ARNICA MONTANA. [Suspect]
     Active Substance: HOMEOPATHICS
     Dosage: START OF ADMINISTRATION AND DOSAGE UNKNOWN
     Route: 048
     Dates: end: 20170119
  2. CERNEVIT [Concomitant]
     Active Substance: VITAMINS
     Dosage: UNK
     Dates: end: 20170119
  3. SOLU-MEDROL [Concomitant]
     Active Substance: METHYLPREDNISOLONE SODIUM SUCCINATE
     Dosage: UNK
  4. OXYCONTIN [Suspect]
     Active Substance: OXYCODONE HYDROCHLORIDE
     Dosage: 10 MG, EVERY 4 HRS (TAKEN ON 20JAN AND 21JAN BUT NOT ON 19JAN START OF ADMINISTRATION UNKNOWN)
     Route: 048
  5. DAFALGAN [Suspect]
     Active Substance: ACETAMINOPHEN
     Dosage: 1 G, 3X/DAY (START OF ADMINISTRATION UNKOWN. POSSIBLE INTAKE ON 19JAN BUT NOT FROM 20 TO 21JAN)
     Route: 048
     Dates: end: 20170119
  6. LAXOBERON [Concomitant]
     Active Substance: SODIUM PICOSULFATE
     Dosage: UNK
  7. CLEXANE [Concomitant]
     Active Substance: ENOXAPARIN SODIUM
     Dosage: 40 MG, 1X/DAY
     Dates: start: 20170120
  8. MAGNESIOCARD [Concomitant]
     Active Substance: MAGNESIUM ASPARTATE HYDROCHLORIDE
     Dosage: 5 MMOL, 2X/DAY
     Dates: start: 20170120
  9. SOLU-MEDROL [Concomitant]
     Active Substance: METHYLPREDNISOLONE SODIUM SUCCINATE
     Dosage: 125 MG, 1X/DAY
     Route: 042
     Dates: start: 20170119, end: 20170122
  10. LYRICA [Suspect]
     Active Substance: PREGABALIN
     Dosage: 150 MG, 2X/DAY (TAKEN ON 20JAN AND 21JAN BUT NOT ON 19JAN. START OF ADMINISTRATION UNKNOWN)
     Route: 048
  11. OPDIVO [Suspect]
     Active Substance: NIVOLUMAB
     Dosage: UNK
  12. OXYCONTIN [Suspect]
     Active Substance: OXYCODONE HYDROCHLORIDE
     Dosage: 40 MG, 1X/DAY (TAKEN ON 20JAN AND 21JAN BUT NOT ON 19JAN START OF ADMINISTRATION UNKNOWN)
     Route: 048
  13. ISCADOR [Suspect]
     Active Substance: VISCUM ALBUM FRUITING TOP
     Dosage: START OF ADMINISTRATION AND DOSAGE UNKNOWN. POSSIBLE INTAKE ON 19JAN BUT NOT FROM  20 TO 21JAN
     Route: 058
  14. OPDIVO [Suspect]
     Active Substance: NIVOLUMAB
     Dosage: UNK
     Route: 040
     Dates: start: 20170119
  15. ALENDRONATE SANDOZ [Suspect]
     Active Substance: ALENDRONATE SODIUM
     Dosage: 70 MG, WEEKLY (NO INTAKE BETWEEN 19 AND 21JAN. START OF ADMINISTRATION UNKNOWN)
     Route: 048
  16. NEXIUM [Suspect]
     Active Substance: ESOMEPRAZOLE MAGNESIUM
     Dosage: 40 MG, 1X/DAY (TAKEN ON 20JAN AND 21JAN BUT NOT ON 19JAN. START OF ADMINISTRATION UNKNOWN)
     Route: 048
  17. CALCIMAGON D3 [Concomitant]
     Active Substance: CALCIUM\CHOLECALCIFEROL
     Dosage: 1 DF, 1X/DAY
     Route: 048
  18. MOVICOL [Concomitant]
     Active Substance: POLYETHYLENE GLYCOL 3350\POTASSIUM CHLORIDE\SODIUM BICARBONATE\SODIUM CHLORIDE
     Dosage: UNK
     Route: 048

REACTIONS (1)
  - Hepatocellular injury [Recovered/Resolved]

NARRATIVE: CASE EVENT DATE: 20170119
